FAERS Safety Report 5531278-9 (Version None)
Quarter: 2007Q4

REPORT INFORMATION
  Report Type: 
  Country: None (occurrence: None)
  Receive Date: 20071127
  Receipt Date: 20071112
  Transmission Date: 20080405
  Serious: Yes (Other)
  Sender: FDA-Public Use
  Company Number: B0496689A

PATIENT
  Age: 37 Year
  Sex: Female

DRUGS (3)
  1. FLUTICASONE PROPIONATE [Suspect]
     Dosage: INHALED
     Route: 055
  2. LOPINAVIR AND RITONAVIR [Suspect]
     Indication: HIV INFECTION
  3. COMBIVIR [Concomitant]

REACTIONS (4)
  - ACNE [None]
  - CUSHING'S SYNDROME [None]
  - DRUG INTERACTION [None]
  - SKIN STRIAE [None]
